FAERS Safety Report 22007294 (Version 1)
Quarter: 2023Q1

REPORT INFORMATION
  Report Type: Report from Study
  Country: CO (occurrence: CO)
  Receive Date: 20230218
  Receipt Date: 20230218
  Transmission Date: 20230418
  Serious: Yes (Other)
  Sender: FDA-Public Use
  Company Number: CO-ABBVIE-4311062

PATIENT
  Age: 66 Year
  Sex: Female

DRUGS (1)
  1. ZEMPLAR [Suspect]
     Active Substance: PARICALCITOL
     Indication: Chronic kidney disease
     Dosage: FREQUENCY: POST DIALYSIS
     Route: 042
     Dates: start: 20190510, end: 20221010

REACTIONS (5)
  - General physical health deterioration [Unknown]
  - Catheter placement [Not Recovered/Not Resolved]
  - Procedural pain [Not Recovered/Not Resolved]
  - Condition aggravated [Not Recovered/Not Resolved]
  - Dialysis related complication [Unknown]

NARRATIVE: CASE EVENT DATE: 20230201
